FAERS Safety Report 17864532 (Version 1)
Quarter: 2020Q2

REPORT INFORMATION
  Report Type: Spontaneous
  Country: US (occurrence: US)
  Receive Date: 20200604
  Receipt Date: 20200604
  Transmission Date: 20200714
  Serious: No
  Sender: FDA-Public Use
  Company Number: None

PATIENT
  Age: 61 Year
  Sex: Female
  Weight: 76.5 kg

DRUGS (2)
  1. SUTENT [Suspect]
     Active Substance: SUNITINIB MALATE
     Indication: NEUROENDOCRINE TUMOUR
     Route: 048
     Dates: start: 20200206
  2. SUTENT [Suspect]
     Active Substance: SUNITINIB MALATE
     Indication: METASTASIS
     Route: 048
     Dates: start: 20200206

REACTIONS (1)
  - Tongue blistering [None]

NARRATIVE: CASE EVENT DATE: 20200603
